APPROVED DRUG PRODUCT: LOPID
Active Ingredient: GEMFIBROZIL
Strength: 600MG
Dosage Form/Route: TABLET;ORAL
Application: N018422 | Product #003 | TE Code: AB
Applicant: PFIZER PHARMACEUTICALS LTD
Approved: Nov 20, 1986 | RLD: Yes | RS: Yes | Type: RX